FAERS Safety Report 23480131 (Version 1)
Quarter: 2024Q1

REPORT INFORMATION
  Report Type: Other
  Country: RO (occurrence: None)
  Receive Date: 20240205
  Receipt Date: 20240205
  Transmission Date: 20240410
  Serious: Yes (Death)
  Sender: FDA-Public Use
  Company Number: RO-ROCHE-3502924

PATIENT
  Sex: Female
  Weight: 56 kg

DRUGS (1)
  1. PHESGO [Suspect]
     Active Substance: HYALURONIDASE-ZZXF\PERTUZUMAB\TRASTUZUMAB
     Indication: Metastasis
     Dosage: STRENGTH - 600MG/600MG
     Route: 042
     Dates: start: 2021

REACTIONS (1)
  - Death [Fatal]
